FAERS Safety Report 15142896 (Version 1)
Quarter: 2018Q3

REPORT INFORMATION
  Report Type: Spontaneous
  Country: US (occurrence: US)
  Receive Date: 20180713
  Receipt Date: 20180713
  Transmission Date: 20181010
  Serious: Yes (Hospitalization, Other)
  Sender: FDA-Public Use
  Company Number: US-ALEMBIC PHARMACUETICALS LIMITED-2018SCAL000493

PATIENT

DRUGS (8)
  1. FLUOXETINE HYDROCHLORIDE. [Suspect]
     Active Substance: FLUOXETINE HYDROCHLORIDE
     Indication: DEPRESSION
     Dosage: UNK
  2. CYPROHEPTADINE /00042702/ [Suspect]
     Active Substance: CYPROHEPTADINE HYDROCHLORIDE
     Indication: INSOMNIA
     Dosage: UNK
  3. RISPERIDONE. [Suspect]
     Active Substance: RISPERIDONE
     Indication: SCHIZOAFFECTIVE DISORDER
     Dosage: UNK
  4. BUPROPION. [Suspect]
     Active Substance: BUPROPION
     Indication: PRODUCT USED FOR UNKNOWN INDICATION
     Dosage: UNK
  5. TRAZODONE [Suspect]
     Active Substance: TRAZODONE HYDROCHLORIDE
     Indication: PRODUCT USED FOR UNKNOWN INDICATION
     Dosage: UNK
  6. OLANZAPINE. [Suspect]
     Active Substance: OLANZAPINE
     Indication: SCHIZOAFFECTIVE DISORDER
     Dosage: UNK
  7. CYPROHEPTADINE                     /00042702/ [Suspect]
     Active Substance: CYPROHEPTADINE HYDROCHLORIDE
     Dosage: 12 MILLIGRAM
  8. CYPROHEPTADINE                     /00042702/ [Suspect]
     Active Substance: CYPROHEPTADINE HYDROCHLORIDE
     Dosage: 2 MG EVERY 2 HOURS AS NEEDED, WITH AN ADDITIONAL 12 MG OVER THE NEXT 72 H

REACTIONS (31)
  - White blood cell count increased [Recovered/Resolved]
  - Unresponsive to stimuli [Unknown]
  - Blood creatinine increased [Recovered/Resolved]
  - Rhabdomyolysis [Recovering/Resolving]
  - Electrocardiogram QT prolonged [Unknown]
  - Hypotension [Recovering/Resolving]
  - Muscle rigidity [Recovering/Resolving]
  - Myoclonus [Recovering/Resolving]
  - Chills [Recovering/Resolving]
  - Nystagmus [Recovering/Resolving]
  - Mental status changes [Recovering/Resolving]
  - Blood creatine phosphokinase increased [Recovering/Resolving]
  - Serotonin syndrome [Recovering/Resolving]
  - Pyrexia [Recovering/Resolving]
  - Reflexes abnormal [Recovering/Resolving]
  - Clonus [Recovered/Resolved]
  - Hyperreflexia [Recovered/Resolved]
  - Agitation [Recovering/Resolving]
  - Blood pressure systolic increased [Recovering/Resolving]
  - Pneumonia aspiration [Unknown]
  - Haemodynamic instability [Recovered/Resolved]
  - Pupil fixed [Recovering/Resolving]
  - Coma scale abnormal [Recovering/Resolving]
  - Autonomic nervous system imbalance [Recovering/Resolving]
  - Blood bicarbonate decreased [Recovering/Resolving]
  - Intentional overdose [Unknown]
  - Acute kidney injury [Recovering/Resolving]
  - Electrolyte imbalance [Recovered/Resolved]
  - Liver function test increased [Recovering/Resolving]
  - Blood lactic acid increased [Recovering/Resolving]
  - Eyelid myoclonus [Recovered/Resolved]
